FAERS Safety Report 11554902 (Version 1)
Quarter: 2015Q3

REPORT INFORMATION
  Report Type: Spontaneous
  Country: US (occurrence: US)
  Receive Date: 20150903
  Receipt Date: 20150903
  Transmission Date: 20151125
  Serious: No
  Sender: FDA-Public Use
  Company Number: US-ELI_LILLY_AND_COMPANY-US201009002501

PATIENT
  Sex: Male

DRUGS (7)
  1. SUBOXONE [Concomitant]
     Active Substance: BUPRENORPHINE HYDROCHLORIDE\NALOXONE HYDROCHLORIDE
  2. HUMALOG [Suspect]
     Active Substance: INSULIN LISPRO
     Dosage: 11 U, 4/D
     Dates: start: 20090501
  3. HUMALOG [Suspect]
     Active Substance: INSULIN LISPRO
     Dosage: 11 U, 4/D
     Dates: start: 20090501
  4. HUMALOG [Suspect]
     Active Substance: INSULIN LISPRO
     Dosage: 11 U, 4/D
     Dates: start: 20090501
  5. HUMALOG [Suspect]
     Active Substance: INSULIN LISPRO
     Dosage: 11 U, 4/D
     Dates: start: 20090501
  6. HUMALOG [Suspect]
     Active Substance: INSULIN LISPRO
     Indication: DIABETES MELLITUS
     Dosage: 11 U, 4/D
     Dates: start: 20090501
  7. LANTUS [Concomitant]
     Active Substance: INSULIN GLARGINE
     Indication: DIABETES MELLITUS
     Dosage: UNK, EACH EVENING

REACTIONS (7)
  - Blood glucose increased [Recovered/Resolved]
  - Incorrect product storage [Unknown]
  - Blood glucose fluctuation [Unknown]
  - Blood glucose decreased [Recovered/Resolved]
  - Enteritis infectious [Not Recovered/Not Resolved]
  - Malaise [Not Recovered/Not Resolved]
  - Constipation [Unknown]

NARRATIVE: CASE EVENT DATE: 2010
